FAERS Safety Report 6137609-3 (Version None)
Quarter: 2009Q1

REPORT INFORMATION
  Report Type: 
  Country: None (occurrence: None)
  Receive Date: 20090331
  Receipt Date: 20090319
  Transmission Date: 20090719
  Serious: Yes (Other)
  Sender: FDA-Public Use
  Company Number: CR-JNJFOC-20090304200

PATIENT
  Age: 85 Year
  Sex: Female

DRUGS (9)
  1. SPORANOX [Suspect]
     Indication: FUNGAL SKIN INFECTION
     Route: 048
  2. CILOSTAZOL [Interacting]
     Indication: VENOUS INSUFFICIENCY
     Route: 048
  3. SEROQUEL [Suspect]
     Route: 048
  4. SEROQUEL [Suspect]
     Indication: DRUG USE FOR UNKNOWN INDICATION
     Route: 048
  5. LASIX [Concomitant]
     Indication: CARDIAC FAILURE CONGESTIVE
     Route: 048
  6. COREG [Concomitant]
     Indication: CARDIAC FAILURE CONGESTIVE
     Dosage: HALF TABLET TWICE A DAY
     Route: 048
  7. LUVOX [Concomitant]
     Route: 048
  8. HALCION [Concomitant]
     Route: 065
  9. ARICEPT [Concomitant]
     Route: 065

REACTIONS (5)
  - DRUG INTERACTION [None]
  - DYSPHAGIA [None]
  - LETHARGY [None]
  - PSEUDOBULBAR PALSY [None]
  - SOMNOLENCE [None]
